FAERS Safety Report 14623503 (Version 2)
Quarter: 2018Q1

REPORT INFORMATION
  Report Type: Spontaneous
  Country: FR (occurrence: FR)
  Receive Date: 20180312
  Receipt Date: 20180317
  Transmission Date: 20180509
  Serious: Yes (Other)
  Sender: FDA-Public Use
  Company Number: FR-AUROBINDO-AUR-APL-2018-013264

PATIENT
  Age: 70 Year
  Sex: Female
  Weight: 59 kg

DRUGS (13)
  1. FLUCONAZOLE. [Suspect]
     Active Substance: FLUCONAZOLE
     Indication: ORAL FUNGAL INFECTION
     Route: 048
     Dates: start: 20171012, end: 20171031
  2. FUNGIZONE [Suspect]
     Active Substance: AMPHOTERICIN B
     Indication: PRODUCT USED FOR UNKNOWN INDICATION
     Dosage: ()
     Route: 065
  3. TAHOR [Concomitant]
     Active Substance: ATORVASTATIN CALCIUM
     Route: 065
  4. OGAST [Concomitant]
     Active Substance: LANSOPRAZOLE
     Dosage: EVENING (1)
     Route: 065
  5. IXPRIM [Concomitant]
     Active Substance: ACETAMINOPHEN\TRAMADOL HYDROCHLORIDE
     Dosage: MORNING, NOON AND EVENING
     Route: 065
  6. IMOVANE [Concomitant]
     Active Substance: ZOPICLONE
     Dosage: (1)
     Route: 065
  7. OFLOXACIN. [Suspect]
     Active Substance: OFLOXACIN
     Indication: ABSCESS
     Route: 048
     Dates: start: 20170921, end: 20170926
  8. PANTOPRAZOLE [Concomitant]
     Active Substance: PANTOPRAZOLE
     Route: 065
  9. FORLAX [Concomitant]
     Active Substance: POLYETHYLENE GLYCOL 4000
     Dosage: MORNING
     Route: 065
  10. SULFARLEM [Concomitant]
     Active Substance: ANETHOLTRITHION
     Dosage: MORNING, NOON AND EVENING
     Route: 065
  11. LEXOMIL [Concomitant]
     Active Substance: BROMAZEPAM
     Dosage: 1 EVENING FROM TIME TO TIME
     Route: 065
  12. TRAMADOL. [Concomitant]
     Active Substance: TRAMADOL
     Dosage: ()
     Route: 065
  13. SERESTA [Concomitant]
     Active Substance: OXAZEPAM
     Dosage: 5 MILLIGRAM
     Route: 065

REACTIONS (15)
  - Burn oesophageal [Not Recovered/Not Resolved]
  - Ageusia [Not Recovered/Not Resolved]
  - Leukoplakia oral [Recovering/Resolving]
  - Gastrointestinal disorder [Not Recovered/Not Resolved]
  - Dysphagia [Not Recovered/Not Resolved]
  - Feeding disorder [Not Recovered/Not Resolved]
  - Swollen tongue [Unknown]
  - Tongue discolouration [Unknown]
  - Dehydration [Not Recovered/Not Resolved]
  - Swelling face [Unknown]
  - Dysgeusia [Not Recovered/Not Resolved]
  - Aptyalism [Not Recovered/Not Resolved]
  - Paraesthesia oral [Not Recovered/Not Resolved]
  - Tongue ulceration [Not Recovered/Not Resolved]
  - Pain [Not Recovered/Not Resolved]

NARRATIVE: CASE EVENT DATE: 20170922
